FAERS Safety Report 22133361 (Version 1)
Quarter: 2023Q1

REPORT INFORMATION
  Report Type: Spontaneous
  Country: MX (occurrence: MX)
  Receive Date: 20230324
  Receipt Date: 20230324
  Transmission Date: 20230417
  Serious: Yes (Other)
  Sender: FDA-Public Use
  Company Number: MX-BAXTER-2023BAX015982

PATIENT
  Age: 38 Year
  Sex: Male

DRUGS (2)
  1. DIANEAL [Suspect]
     Active Substance: CALCIUM CHLORIDE\DEXTROSE\MAGNESIUM CHLORIDE\SODIUM CHLORIDE\SODIUM LACTATE
     Indication: Peritoneal dialysis
     Route: 033
  2. DIANEAL [Suspect]
     Active Substance: CALCIUM CHLORIDE\DEXTROSE\MAGNESIUM CHLORIDE\SODIUM CHLORIDE\SODIUM LACTATE
     Indication: Peritoneal dialysis
     Route: 033

REACTIONS (3)
  - Ultrafiltration failure [Recovering/Resolving]
  - Device issue [Unknown]
  - Oedema peripheral [Recovering/Resolving]
